FAERS Safety Report 9913515 (Version 1)
Quarter: 2014Q1

REPORT INFORMATION
  Report Type: Spontaneous
  Country: US (occurrence: None)
  Receive Date: 20140212
  Receipt Date: 20140212
  Transmission Date: 20141002
  Serious: Yes (Death)
  Sender: FDA-Public Use
  Company Number: AUR-APL-2014-01069

PATIENT
  Age: 33 Year
  Sex: Male

DRUGS (6)
  1. ALPRAZOLAM(ALPRAZOLAM) (ALPRAZOLAM) [Suspect]
  2. MIRTAZAPINE (MIRTAZAPINE) [Suspect]
  3. OXYCODONE(OXYCODONE) [Suspect]
  4. QUETIAPINE ( QUETIAPINE) [Suspect]
  5. OXYMORPHONE [Suspect]
  6. DIAZEPAM (DIAZEPAM) [Suspect]

REACTIONS (1)
  - Drug abuse [None]
